FAERS Safety Report 10261762 (Version 1)
Quarter: 2014Q2

REPORT INFORMATION
  Report Type: Spontaneous
  Country: US (occurrence: None)
  Receive Date: 20140624
  Receipt Date: 20140624
  Transmission Date: 20141212
  Serious: No
  Sender: FDA-Public Use
  Company Number: None

PATIENT
  Sex: Male

DRUGS (1)
  1. ZYTIGA 250 MG [Suspect]
     Indication: PROSTATE CANCER
     Route: 048
     Dates: start: 201202

REACTIONS (2)
  - Fluid retention [None]
  - Laboratory test abnormal [None]
